FAERS Safety Report 17088766 (Version 1)
Quarter: 2019Q4

REPORT INFORMATION
  Report Type: Spontaneous
  Country: US (occurrence: US)
  Receive Date: 20191031
  Receipt Date: 20191031
  Transmission Date: 20200122
  Serious: No
  Sender: FDA-Public Use
  Company Number: None

PATIENT
  Age: 56 Year
  Sex: Male

DRUGS (1)
  1. TAFINLAR [Suspect]
     Active Substance: DABRAFENIB MESYLATE
     Route: 048
     Dates: start: 20190909

REACTIONS (5)
  - Asthenia [None]
  - Cerebrovascular accident [None]
  - Fungal infection [None]
  - Seizure [None]
  - Cerebral fungal infection [None]

NARRATIVE: CASE EVENT DATE: 20191031
